FAERS Safety Report 9832781 (Version 1)
Quarter: 2014Q1

REPORT INFORMATION
  Report Type: Spontaneous
  Country: US (occurrence: US)
  Receive Date: 20140121
  Receipt Date: 20140121
  Transmission Date: 20141002
  Serious: Yes (Death)
  Sender: FDA-Public Use
  Company Number: US-GLAXOSMITHKLINE-A1057320A

PATIENT
  Age: 64 Year
  Sex: Female

DRUGS (11)
  1. VOTRIENT [Suspect]
     Indication: RENAL CANCER
     Dosage: 800MG PER DAY
     Route: 048
     Dates: start: 20130822
  2. PROTONIX [Concomitant]
  3. MULTIVITAMIN [Concomitant]
  4. KEPPRA [Concomitant]
  5. HUMALOG [Concomitant]
  6. LANTUS [Concomitant]
  7. RITALIN [Concomitant]
  8. LOVENOX [Concomitant]
  9. DEXAMETHASONE [Concomitant]
  10. PENTOXIFYLLINE [Concomitant]
  11. ATENOLOL [Concomitant]

REACTIONS (1)
  - Death [Fatal]
